FAERS Safety Report 23046308 (Version 2)
Quarter: 2023Q4

REPORT INFORMATION
  Report Type: Spontaneous
  Country: RO (occurrence: RO)
  Receive Date: 20231009
  Receipt Date: 20231017
  Transmission Date: 20240109
  Serious: Yes (Life-Threatening)
  Sender: FDA-Public Use
  Company Number: None

PATIENT
  Age: 56 Year
  Sex: Male
  Weight: 82 kg

DRUGS (5)
  1. IRINOTECAN HYDROCHLORIDE [Suspect]
     Active Substance: IRINOTECAN HYDROCHLORIDE
     Indication: Rectal adenocarcinoma
     Route: 042
     Dates: start: 20230919, end: 20230919
  2. GRANISETRON KABI 1 mg/ml [Concomitant]
     Indication: Product used for unknown indication
     Route: 042
     Dates: start: 20230919, end: 20230919
  3. OMEPRAZOLE ZENTIVA 20 mg [Concomitant]
     Indication: Product used for unknown indication
     Route: 042
     Dates: start: 20230919, end: 20230919
  4. OMEPRAZOLE ZENTIVA 20 mg [Concomitant]
     Indication: Adverse drug reaction
  5. BEVACIZUMAB [Concomitant]
     Active Substance: BEVACIZUMAB
     Indication: Rectal adenocarcinoma
     Route: 042
     Dates: start: 20230919, end: 20230919

REACTIONS (5)
  - Nausea [Recovered/Resolved]
  - Hyperhidrosis [Recovered/Resolved]
  - Vertigo [Recovered/Resolved]
  - Vision blurred [Recovered/Resolved]
  - Cold sweat [Recovered/Resolved]

NARRATIVE: CASE EVENT DATE: 20230919
